FAERS Safety Report 6225635-5 (Version None)
Quarter: 2009Q2

REPORT INFORMATION
  Report Type: 
  Country: None (occurrence: None)
  Receive Date: 20090612
  Receipt Date: 20090529
  Transmission Date: 20091009
  Serious: Yes (Other)
  Sender: FDA-Public Use
  Company Number: UG-RANBAXY-2009RR-24601

PATIENT
  Age: 60 Year
  Sex: Female

DRUGS (4)
  1. STAVUDINE [Suspect]
     Indication: HIV INFECTION
     Dosage: 30 MG, UNK
  2. ZIDOVUDINE [Suspect]
     Indication: HIV INFECTION
  3. LAMIVUDINE [Suspect]
     Indication: HIV INFECTION
  4. NEVIRAPINE [Suspect]
     Indication: HIV INFECTION

REACTIONS (1)
  - HYPERLACTACIDAEMIA [None]
